FAERS Safety Report 14665208 (Version 4)
Quarter: 2018Q2

REPORT INFORMATION
  Report Type: Spontaneous
  Country: JP (occurrence: JP)
  Receive Date: 20180321
  Receipt Date: 20180601
  Transmission Date: 20180711
  Serious: Yes (Hospitalization, Other)
  Sender: FDA-Public Use
  Company Number: JP-SA-2018SA081066

PATIENT
  Age: 28 Year
  Sex: Male

DRUGS (2)
  1. XYZAL [Suspect]
     Active Substance: LEVOCETIRIZINE DIHYDROCHLORIDE
     Indication: PUSTULAR PSORIASIS
  2. XYZAL [Suspect]
     Active Substance: LEVOCETIRIZINE DIHYDROCHLORIDE
     Indication: PRURITUS
     Dosage: 10 MG,QD
     Route: 048
     Dates: start: 20180301, end: 20180304

REACTIONS (7)
  - Electrocardiogram ST segment elevation [Recovering/Resolving]
  - Bundle branch block right [Recovering/Resolving]
  - Brugada syndrome [Recovering/Resolving]
  - Hyperammonaemia [Recovered/Resolved]
  - Ventricular extrasystoles [Recovering/Resolving]
  - Somnolence [Recovering/Resolving]
  - Depressed level of consciousness [Recovered/Resolved]

NARRATIVE: CASE EVENT DATE: 201803
